FAERS Safety Report 7265668-3 (Version None)
Quarter: 2011Q1

REPORT INFORMATION
  Report Type: 
  Country: None (occurrence: None)
  Receive Date: 20110131
  Receipt Date: 20110120
  Transmission Date: 20110831
  Serious: Yes (Hospitalization)
  Sender: FDA-Public Use
  Company Number: US-SANOFI-AVENTIS-2011SA004789

PATIENT
  Age: 77 Year
  Sex: Male

DRUGS (3)
  1. SOLOSTAR [Suspect]
  2. LANTUS [Suspect]
     Route: 058
  3. GLIMEPIRIDE [Suspect]
     Route: 065

REACTIONS (1)
  - HOSPITALISATION [None]
